FAERS Safety Report 13557663 (Version 11)
Quarter: 2019Q2

REPORT INFORMATION
  Report Type: Report from Study
  Country: US (occurrence: US)
  Receive Date: 20170518
  Receipt Date: 20190513
  Transmission Date: 20190711
  Serious: Yes (Life-Threatening, Hospitalization, Other)
  Sender: FDA-Public Use
  Company Number: US-JNJFOC-20170502960

PATIENT
  Age: 73 Year
  Sex: Male

DRUGS (20)
  1. ALEVE [Concomitant]
     Active Substance: NAPROXEN SODIUM
  2. FLUTICASONE. [Concomitant]
     Active Substance: FLUTICASONE
  3. IMBRUVICA [Suspect]
     Active Substance: IBRUTINIB
     Indication: CHRONIC LYMPHOCYTIC LEUKAEMIA
     Route: 048
     Dates: start: 20170120, end: 20170507
  4. IMBRUVICA [Suspect]
     Active Substance: IBRUTINIB
     Indication: CHRONIC LYMPHOCYTIC LEUKAEMIA
     Route: 048
     Dates: start: 20170509
  5. ASPIRIN. [Concomitant]
     Active Substance: ASPIRIN
  6. LOSARTAN. [Concomitant]
     Active Substance: LOSARTAN
  7. NIACIN. [Concomitant]
     Active Substance: NIACIN
  8. POTASSIUM CHLORIDE. [Concomitant]
     Active Substance: POTASSIUM CHLORIDE
  9. VITAMIN D NOS [Concomitant]
     Active Substance: VITAMIN D NOS
  10. IMBRUVICA [Suspect]
     Active Substance: IBRUTINIB
     Indication: CHRONIC LYMPHOCYTIC LEUKAEMIA
     Route: 048
     Dates: start: 20170119, end: 20180525
  11. ALLOPURINOL. [Concomitant]
     Active Substance: ALLOPURINOL
  12. AMOXICILLIN. [Concomitant]
     Active Substance: AMOXICILLIN
  13. VITAMIN D3 [Concomitant]
     Active Substance: CHOLECALCIFEROL
  14. NORVASC [Concomitant]
     Active Substance: AMLODIPINE BESYLATE
  15. CLONIDINE. [Concomitant]
     Active Substance: CLONIDINE
  16. FISH OIL W/TOCOPHEROL [Concomitant]
     Active Substance: FISH OIL\TOCOPHEROL
  17. TUMS [Concomitant]
     Active Substance: CALCIUM CARBONATE
  18. FOLIC ACID. [Concomitant]
     Active Substance: FOLIC ACID
  19. HYDROCHLOROTHIAZIDE. [Concomitant]
     Active Substance: HYDROCHLOROTHIAZIDE
  20. CEFDINIR. [Concomitant]
     Active Substance: CEFDINIR

REACTIONS (7)
  - Aortic dissection [Recovered/Resolved]
  - Myocardial infarction [Unknown]
  - Ischaemic nephropathy [Unknown]
  - White blood cell count decreased [Recovering/Resolving]
  - Aortic aneurysm [Recovered/Resolved]
  - Pleural effusion [Recovering/Resolving]
  - Fatigue [Recovering/Resolving]

NARRATIVE: CASE EVENT DATE: 201701
